FAERS Safety Report 22128956 (Version 1)
Quarter: 2023Q1

REPORT INFORMATION
  Report Type: Spontaneous
  Country: US (occurrence: US)
  Receive Date: 20230323
  Receipt Date: 20230323
  Transmission Date: 20230417
  Serious: No
  Sender: FDA-Public Use
  Company Number: US-002147023-NVSC2023US063360

PATIENT
  Sex: Female

DRUGS (1)
  1. PROMACTA [Suspect]
     Active Substance: ELTROMBOPAG OLAMINE
     Indication: Product used for unknown indication
     Dosage: 12.5 MG, EVERY OTHER DAY
     Route: 048
     Dates: start: 202009

REACTIONS (4)
  - Gingival bleeding [Unknown]
  - Headache [Unknown]
  - Platelet count decreased [Unknown]
  - Insomnia [Unknown]
